FAERS Safety Report 24891861 (Version 2)
Quarter: 2025Q1

REPORT INFORMATION
  Report Type: Report from Study
  Country: US (occurrence: US)
  Receive Date: 20250127
  Receipt Date: 20250129
  Transmission Date: 20250409
  Serious: Yes (Disabling)
  Sender: ABBVIE
  Company Number: US-ABBVIE-6098976

PATIENT
  Sex: Female

DRUGS (1)
  1. HUMIRA [Suspect]
     Active Substance: ADALIMUMAB
     Indication: Product used for unknown indication
     Route: 058
     Dates: start: 20240103

REACTIONS (6)
  - Disability [Unknown]
  - Chronic fatigue syndrome [Unknown]
  - Post-acute COVID-19 syndrome [Unknown]
  - Rheumatoid arthritis [Unknown]
  - Hypersomnia [Unknown]
  - Illness [Unknown]
